FAERS Safety Report 8140713-1 (Version None)
Quarter: 2012Q1

REPORT INFORMATION
  Report Type: 
  Country: None (occurrence: None)
  Receive Date: 20120213
  Receipt Date: 20120213
  Transmission Date: 20120608
  Serious: Yes (Other)
  Sender: FDA-Public Use
  Company Number: None

PATIENT
  Sex: Female
  Weight: 22.6799 kg

DRUGS (2)
  1. DEPAKOTE [Suspect]
  2. TEGRETOL [Suspect]
     Indication: CONVULSION
     Dosage: TEGRETOL 200MG 5 TIMES DAILY ORAL
     Route: 048

REACTIONS (6)
  - INSOMNIA [None]
  - MULTIPLE INJURIES [None]
  - PRODUCT SUBSTITUTION ISSUE [None]
  - CONDITION AGGRAVATED [None]
  - HYPOPHAGIA [None]
  - CONVULSION [None]
